FAERS Safety Report 15594021 (Version 1)
Quarter: 2018Q4

REPORT INFORMATION
  Report Type: Report from Study
  Country: US (occurrence: US)
  Receive Date: 20181107
  Receipt Date: 20181107
  Transmission Date: 20190205
  Serious: Yes (Hospitalization)
  Sender: FDA-Public Use
  Company Number: US-BAYER-2018-194561

PATIENT
  Age: 56 Year
  Sex: Female
  Weight: 106.58 kg

DRUGS (4)
  1. ADEMPAS [Suspect]
     Active Substance: RIOCIGUAT
     Indication: PULMONARY ARTERIAL HYPERTENSION
     Dosage: UNK
     Dates: start: 20180501
  2. WARFARIN [Concomitant]
     Active Substance: WARFARIN
     Dosage: UNK
  3. LETAIRIS [Concomitant]
     Active Substance: AMBRISENTAN
     Dosage: UNK
  4. ADEMPAS [Suspect]
     Active Substance: RIOCIGUAT
     Indication: PULMONARY ARTERIAL HYPERTENSION
     Dosage: 2.5 MG, TID
     Route: 048
     Dates: start: 2018, end: 201810

REACTIONS (6)
  - Rehabilitation therapy [None]
  - Pulmonary embolism [None]
  - Syncope [Unknown]
  - Pulmonary hypertension [None]
  - Medical induction of coma [None]
  - Mechanical ventilation [None]

NARRATIVE: CASE EVENT DATE: 2018
